FAERS Safety Report 18212670 (Version 3)
Quarter: 2020Q4

REPORT INFORMATION
  Report Type: Spontaneous
  Country: US (occurrence: US)
  Receive Date: 20200831
  Receipt Date: 20201007
  Transmission Date: 20210113
  Serious: Yes (Other)
  Sender: FDA-Public Use
  Company Number: US-SA-2020SA230907

PATIENT

DRUGS (2)
  1. APIDRA [Suspect]
     Active Substance: INSULIN GLULISINE
     Dosage: TRIPLING OR QUADRUPLING HER USUAL DOSE
     Route: 065
  2. APIDRA [Suspect]
     Active Substance: INSULIN GLULISINE
     Dosage: UNK
     Route: 065

REACTIONS (3)
  - Drug ineffective [Unknown]
  - Diabetes mellitus inadequate control [Unknown]
  - Product quality issue [Unknown]
